FAERS Safety Report 6443830-7 (Version None)
Quarter: 2009Q4

REPORT INFORMATION
  Report Type: 
  Country: None (occurrence: None)
  Receive Date: 20091117
  Receipt Date: 20091110
  Transmission Date: 20100525
  Serious: Yes (Hospitalization)
  Sender: FDA-Public Use
  Company Number: DE-ABBOTT-09P-062-0607807-00

PATIENT
  Sex: Female
  Weight: 55 kg

DRUGS (3)
  1. HUMIRA [Suspect]
     Indication: CROHN'S DISEASE
     Route: 058
     Dates: start: 20070801, end: 20081007
  2. HUMIRA [Suspect]
     Route: 058
     Dates: start: 20090319, end: 20090428
  3. HUMIRA [Suspect]
     Route: 058
     Dates: start: 20090818

REACTIONS (3)
  - ANAL ABSCESS [None]
  - ANAL FISTULA [None]
  - ANAL SKIN TAGS [None]
